FAERS Safety Report 24576762 (Version 1)
Quarter: 2024Q4

REPORT INFORMATION
  Report Type: Spontaneous
  Country: GB (occurrence: None)
  Receive Date: 20241104
  Receipt Date: 20241104
  Transmission Date: 20250115
  Serious: Yes (Death, Hospitalization)
  Sender: Public
  Company Number: None

PATIENT
  Age: 88 Year
  Sex: Male
  Weight: 6.75 kg

DRUGS (1)
  1. EDOXABAN [Suspect]
     Active Substance: EDOXABAN
     Dates: start: 20211212, end: 20211217

REACTIONS (4)
  - Lower respiratory tract infection [None]
  - Atrial fibrillation [None]
  - Oxygen saturation decreased [None]
  - Drug hypersensitivity [None]

NARRATIVE: CASE EVENT DATE: 20211213
